FAERS Safety Report 8612399-0 (Version None)
Quarter: 2012Q3

REPORT INFORMATION
  Report Type: 
  Country: None (occurrence: None)
  Receive Date: 20120813
  Receipt Date: 20120813
  Transmission Date: 20120928
  Serious: Yes (Hospitalization)
  Sender: FDA-Public Use
  Company Number: None

PATIENT
  Sex: Male

DRUGS (1)
  1. EXJADE [Suspect]
     Indication: BLOOD IRON
     Dosage: 1000MG DAILY ORAL
     Route: 048
     Dates: start: 20100706

REACTIONS (2)
  - DIARRHOEA [None]
  - BLOOD SODIUM DECREASED [None]
